FAERS Safety Report 19355866 (Version 1)
Quarter: 2021Q2

REPORT INFORMATION
  Report Type: Spontaneous
  Country: US (occurrence: US)
  Receive Date: 20210602
  Receipt Date: 20210602
  Transmission Date: 20210717
  Serious: Yes (Hospitalization, Other)
  Sender: FDA-Public Use
  Company Number: US-GRANULES-US-2021GRALIT00319

PATIENT
  Age: 25 Year
  Sex: Female

DRUGS (4)
  1. HYDROCODONE/ACETAMINOPHEN [Concomitant]
     Active Substance: ACETAMINOPHEN\HYDROCODONE
     Indication: TOOTHACHE
     Dosage: 5/300MG
     Route: 065
  2. ACETYLCYSTEINE. [Interacting]
     Active Substance: ACETYLCYSTEINE
     Indication: PRODUCT USED FOR UNKNOWN INDICATION
     Route: 065
  3. ACETAMINOPHEN. [Suspect]
     Active Substance: ACETAMINOPHEN
     Indication: TOOTHACHE
     Route: 065
  4. ACETAMINOPHEN. [Suspect]
     Active Substance: ACETAMINOPHEN
     Dosage: 3000 TO 4000 MG
     Route: 065

REACTIONS (7)
  - Blood lactic acid increased [Recovered/Resolved]
  - Abdominal pain [Unknown]
  - Sepsis [Unknown]
  - Toxicity to various agents [Recovered/Resolved]
  - Exposure during pregnancy [Unknown]
  - Metabolic acidosis [Recovering/Resolving]
  - Transaminases increased [Recovered/Resolved]
